FAERS Safety Report 5897205-X (Version None)
Quarter: 2008Q3

REPORT INFORMATION
  Report Type: 
  Country: None (occurrence: None)
  Receive Date: 20080923
  Receipt Date: 20080908
  Transmission Date: 20090109
  Serious: Yes (Death, Hospitalization)
  Sender: FDA-Public Use
  Company Number: KADN20080093

PATIENT
  Age: 21 Month
  Sex: Male

DRUGS (2)
  1. MORPHINE [Suspect]
     Dosage: ORAL
     Route: 048
     Dates: start: 20050101, end: 20050101
  2. NALOXONE [Suspect]
     Dates: start: 20050101, end: 20050101

REACTIONS (9)
  - BLOOD PH DECREASED [None]
  - BRAIN DEATH [None]
  - CYANOSIS [None]
  - HYPOTENSION [None]
  - LETHARGY [None]
  - MIOSIS [None]
  - OPIATES POSITIVE [None]
  - PO2 DECREASED [None]
  - POSTURING [None]
